FAERS Safety Report 7548189-X (Version None)
Quarter: 2011Q2

REPORT INFORMATION
  Report Type: 
  Country: None (occurrence: None)
  Receive Date: 20110615
  Receipt Date: 20110609
  Transmission Date: 20111010
  Serious: Yes (Death, Hospitalization, Other)
  Sender: FDA-Public Use
  Company Number: US-AMGEN-USASP2010008199

PATIENT
  Age: 63 Year
  Sex: Male
  Weight: 94 kg

DRUGS (18)
  1. NEUPOGEN [Suspect]
     Indication: ANAEMIA
     Dosage: UNK
     Dates: start: 20060523, end: 20060708
  2. METOPROLOL [Concomitant]
     Indication: PRODUCT USED FOR UNKNOWN INDICATION
     Dosage: UNK
     Dates: end: 20101204
  3. CODEINE SULFATE [Concomitant]
     Indication: PRODUCT USED FOR UNKNOWN INDICATION
     Dosage: UNK
     Dates: end: 20101204
  4. PRIMIDONE [Concomitant]
     Indication: PRODUCT USED FOR UNKNOWN INDICATION
  5. FEXOFENADINE [Concomitant]
     Indication: PRODUCT USED FOR UNKNOWN INDICATION
     Dosage: UNK
     Dates: start: 20101201, end: 20101204
  6. XALATAN [Concomitant]
     Indication: PRODUCT USED FOR UNKNOWN INDICATION
  7. DECITABINE [Concomitant]
     Dosage: UNK
     Dates: start: 20070101, end: 20100701
  8. FLOMAX [Concomitant]
     Indication: PRODUCT USED FOR UNKNOWN INDICATION
     Dosage: UNK
     Dates: end: 20101201
  9. EXTADEN [Concomitant]
     Indication: PRODUCT USED FOR UNKNOWN INDICATION
     Dosage: UNK
     Dates: start: 20060705, end: 20101101
  10. LOVASTATIN [Concomitant]
     Indication: PRODUCT USED FOR UNKNOWN INDICATION
  11. NPLATE [Suspect]
     Indication: IDIOPATHIC THROMBOCYTOPENIC PURPURA
     Dosage: 75 A?G, QWK
     Route: 058
     Dates: start: 20101110, end: 20101201
  12. TRAZODONE HCL [Concomitant]
     Indication: PRODUCT USED FOR UNKNOWN INDICATION
  13. LORAZEPAM [Concomitant]
     Indication: PRODUCT USED FOR UNKNOWN INDICATION
     Dosage: UNK
     Dates: end: 20101204
  14. EXJADE [Concomitant]
     Indication: PRODUCT USED FOR UNKNOWN INDICATION
  15. PROCRIT [Suspect]
     Indication: ANAEMIA
     Dosage: UNK
     Dates: start: 20030101, end: 20060708
  16. TYLENOL (CAPLET) [Concomitant]
     Indication: MUSCULOSKELETAL PAIN
  17. ENALAPRIL MALEATE [Concomitant]
     Indication: PRODUCT USED FOR UNKNOWN INDICATION
     Dosage: UNK
     Dates: start: 20101201, end: 20101204
  18. OMEPRAZOLE [Concomitant]
     Indication: PRODUCT USED FOR UNKNOWN INDICATION
     Dosage: UNK
     Dates: end: 20101201

REACTIONS (37)
  - PULMONARY GRANULOMA [None]
  - VIRAL INFECTION [None]
  - ACUTE RESPIRATORY DISTRESS SYNDROME [None]
  - DISSEMINATED INTRAVASCULAR COAGULATION [None]
  - PROSTATITIS [None]
  - IRON OVERLOAD [None]
  - BACTERIAL INFECTION [None]
  - IDIOPATHIC THROMBOCYTOPENIC PURPURA [None]
  - MULTI-ORGAN FAILURE [None]
  - SPINAL COLUMN STENOSIS [None]
  - DRUG INEFFECTIVE [None]
  - DIARRHOEA [None]
  - NO THERAPEUTIC RESPONSE [None]
  - BLOOD ALKALINE PHOSPHATASE INCREASED [None]
  - RESPIRATORY ARREST [None]
  - CARDIAC FAILURE CONGESTIVE [None]
  - CHEST PAIN [None]
  - ARTHRALGIA [None]
  - AORTIC VALVE DISEASE [None]
  - PULMONARY EMBOLISM [None]
  - MYELODYSPLASTIC SYNDROME [None]
  - NEPHROLITHIASIS [None]
  - CALCULUS URETERIC [None]
  - COUGH [None]
  - DYSURIA [None]
  - INCORRECT DOSE ADMINISTERED [None]
  - CATHETER SITE HAEMORRHAGE [None]
  - NIGHT SWEATS [None]
  - MUSCULOSKELETAL PAIN [None]
  - BLOOD BILIRUBIN INCREASED [None]
  - CHRONIC OBSTRUCTIVE PULMONARY DISEASE [None]
  - PLATELET COUNT DECREASED [None]
  - BRONCHITIS [None]
  - CHRONIC MYELOMONOCYTIC LEUKAEMIA [None]
  - WHITE BLOOD CELL COUNT INCREASED [None]
  - INTERVERTEBRAL DISC PROTRUSION [None]
  - OROPHARYNGEAL PAIN [None]
